FAERS Safety Report 9224791 (Version 1)
Quarter: 2013Q1

REPORT INFORMATION
  Report Type: Spontaneous
  Country: US (occurrence: None)
  Receive Date: 20120919
  Receipt Date: 20120919
  Transmission Date: 20140127
  Serious: Yes (Life-Threatening)
  Sender: FDA-Public Use
  Company Number: 20120402

PATIENT
  Age: 42 Year
  Sex: Male
  Weight: 88.91 kg

DRUGS (1)
  1. SPRIX [Suspect]
     Indication: BACK PAIN
     Dates: start: 201206, end: 201206

REACTIONS (2)
  - Pharyngeal oedema [None]
  - Swollen tongue [None]
